FAERS Safety Report 10072786 (Version 1)
Quarter: 2014Q2

REPORT INFORMATION
  Report Type: Spontaneous
  Country: GB (occurrence: None)
  Receive Date: 20140409
  Receipt Date: 20140409
  Transmission Date: 20141212
  Serious: Yes (Disabling, Other)
  Sender: FDA-Public Use
  Company Number: 2014-000953

PATIENT
  Age: 22 Year
  Sex: Female
  Weight: 55 kg

DRUGS (2)
  1. DORYX [Suspect]
     Indication: LOWER RESPIRATORY TRACT INFECTION
     Route: 048
     Dates: start: 20140106, end: 20140113
  2. CLARITHROMYCIN (CLARITHROMYCIN) [Concomitant]

REACTIONS (11)
  - Overdose [None]
  - Liver function test abnormal [None]
  - Jaundice [None]
  - Asthenia [None]
  - Fatigue [None]
  - Rash erythematous [None]
  - Rash pruritic [None]
  - Blister [None]
  - Paraesthesia [None]
  - Somnolence [None]
  - Hepatitis viral [None]
